FAERS Safety Report 8911982 (Version 1)
Quarter: 2012Q4

REPORT INFORMATION
  Report Type: 
  Country: BE (occurrence: BE)
  Receive Date: 20121115
  Receipt Date: 20121115
  Transmission Date: 20130627
  Serious: Yes (Other)
  Sender: FDA-Public Use
  Company Number: BE-TEVA-368973ISR

PATIENT
  Age: 43 Year
  Sex: Male

DRUGS (3)
  1. TOPIRAMATE [Suspect]
     Route: 065
  2. VALPROIC ACID [Interacting]
     Route: 065
  3. OXCARBAZEPINE [Interacting]
     Route: 065

REACTIONS (2)
  - Hypothermia [Recovering/Resolving]
  - Drug interaction [Unknown]
